FAERS Safety Report 8957840 (Version 1)
Quarter: 2012Q4

REPORT INFORMATION
  Report Type: 
  Country: FR (occurrence: FR)
  Receive Date: 20121211
  Receipt Date: 20121211
  Transmission Date: 20130627
  Serious: Yes (Hospitalization)
  Sender: FDA-Public Use
  Company Number: FR-ELI_LILLY_AND_COMPANY-FR201211009132

PATIENT
  Age: 87 Year
  Sex: Female

DRUGS (4)
  1. FORSTEO [Suspect]
     Indication: OSTEOPOROSIS
     Dosage: 20 ug, qd
     Route: 058
     Dates: start: 20120308
  2. SERETIDE [Concomitant]
     Dosage: UNK, unknown
     Route: 065
  3. CONTRAMAL [Concomitant]
     Dosage: UNK, unknown
     Route: 065
  4. PARACETAMOL [Concomitant]
     Dosage: UNK, unknown
     Route: 065

REACTIONS (1)
  - Hernial eventration [Recovered/Resolved]
